FAERS Safety Report 7395116-4 (Version None)
Quarter: 2011Q2

REPORT INFORMATION
  Report Type: 
  Country: None (occurrence: None)
  Receive Date: 20110405
  Receipt Date: 20110328
  Transmission Date: 20111010
  Serious: Yes (Other)
  Sender: FDA-Public Use
  Company Number: US-TEVA-274002USA

PATIENT
  Age: 58 Year
  Sex: Male

DRUGS (3)
  1. LIDOCAINE [Suspect]
  2. PROPRANOLOL HCL [Interacting]
     Indication: HYPERTENSION
  3. EPINEPHRINE [Interacting]

REACTIONS (2)
  - DRUG INTERACTION [None]
  - HYPERTENSIVE CRISIS [None]
